FAERS Safety Report 10252402 (Version 2)
Quarter: 2014Q3

REPORT INFORMATION
  Report Type: Spontaneous
  Country: US (occurrence: US)
  Receive Date: 20140623
  Receipt Date: 20140805
  Transmission Date: 20150326
  Serious: No
  Sender: FDA-Public Use
  Company Number: US-TEVA-488271USA

PATIENT
  Sex: Male

DRUGS (1)
  1. NUVIGIL [Suspect]
     Active Substance: ARMODAFINIL
     Indication: DEPRESSED LEVEL OF CONSCIOUSNESS
     Dosage: FREQUENCY NOT PROVIDED
     Dates: start: 20140602, end: 201406

REACTIONS (2)
  - Drug ineffective [Unknown]
  - Chronic fatigue syndrome [Recovered/Resolved]

NARRATIVE: CASE EVENT DATE: 20140603
